FAERS Safety Report 10235781 (Version 1)
Quarter: 2014Q2

REPORT INFORMATION
  Report Type: Spontaneous
  Country: US (occurrence: None)
  Receive Date: 20140612
  Receipt Date: 20140612
  Transmission Date: 20141212
  Serious: Yes (Other)
  Sender: FDA-Public Use
  Company Number: None

PATIENT
  Age: 52 Year
  Sex: Male

DRUGS (2)
  1. GABA [Suspect]
     Indication: NERVOUSNESS
     Route: 048
     Dates: start: 20140601, end: 20140610
  2. PROZAC [Suspect]

REACTIONS (1)
  - Panic attack [None]
